FAERS Safety Report 24544141 (Version 1)
Quarter: 2024Q4

REPORT INFORMATION
  Report Type: Spontaneous
  Country: ES (occurrence: ES)
  Receive Date: 20241024
  Receipt Date: 20241024
  Transmission Date: 20250115
  Serious: Yes (Hospitalization, Other)
  Sender: PFIZER
  Company Number: ES-002147023-NVSC2021ES082764

PATIENT
  Age: 59 Year
  Sex: Male
  Weight: 83 kg

DRUGS (11)
  1. CARBOPLATIN [Suspect]
     Active Substance: CARBOPLATIN
     Indication: B-cell lymphoma refractory
     Dosage: 463.93 MG, SINGLE
     Route: 042
     Dates: start: 20210121
  2. CISPLATIN [Suspect]
     Active Substance: CISPLATIN
     Indication: B-cell lymphoma refractory
     Dosage: 146.7 MG, SINGLE
     Route: 042
     Dates: start: 20201106
  3. RITUXIMAB [Suspect]
     Active Substance: RITUXIMAB
     Indication: B-cell lymphoma refractory
     Dosage: 733.5 MG, SINGLE
     Route: 042
     Dates: start: 20201106
  4. ETOPOSIDE [Suspect]
     Active Substance: ETOPOSIDE
     Indication: B-cell lymphoma refractory
     Dosage: 209.6 MG, SINGLE
     Route: 042
     Dates: start: 20210120
  5. DEXAMETHASONE [Suspect]
     Active Substance: DEXAMETHASONE
     Indication: B-cell lymphoma refractory
     Dosage: 160 MG (EVERYDAY)
     Route: 048
     Dates: start: 20201106
  6. CYCLOPHOSPHAMIDE [Suspect]
     Active Substance: CYCLOPHOSPHAMIDE
     Indication: Chemotherapy
     Dosage: 513 MG, SINGLE
     Route: 065
     Dates: start: 20210303, end: 20210303
  7. CYCLOPHOSPHAMIDE [Suspect]
     Active Substance: CYCLOPHOSPHAMIDE
     Dosage: 513 MG, SINGLE
     Route: 065
     Dates: start: 20210304, end: 20210304
  8. CYCLOPHOSPHAMIDE [Suspect]
     Active Substance: CYCLOPHOSPHAMIDE
     Dosage: 513 MG, SINGLE
     Dates: start: 20210305, end: 20210305
  9. FLUDARABINE [Suspect]
     Active Substance: FLUDARABINE PHOSPHATE
     Dosage: 51.3 MG, SINGLE
     Route: 065
     Dates: start: 20210303, end: 20210303
  10. FLUDARABINE [Suspect]
     Active Substance: FLUDARABINE PHOSPHATE
     Dosage: 51.3 MG, SINGLE
     Route: 065
     Dates: start: 20210304, end: 20210304
  11. FLUDARABINE [Suspect]
     Active Substance: FLUDARABINE PHOSPHATE
     Dosage: 51.3 MG, SINGLE
     Route: 065
     Dates: start: 20210305, end: 20210305

REACTIONS (3)
  - Bone marrow failure [Recovered/Resolved]
  - Septic shock [Recovered/Resolved]
  - Abscess [Recovered/Resolved]

NARRATIVE: CASE EVENT DATE: 20210401
